FAERS Safety Report 4943639-7 (Version None)
Quarter: 2006Q1

REPORT INFORMATION
  Report Type: 
  Country: None (occurrence: None)
  Receive Date: 20060314
  Receipt Date: 20051024
  Transmission Date: 20060701
  Serious: Yes (Death, Hospitalization, Other)
  Sender: FDA-Public Use
  Company Number: US-MERCK-0510USA08789

PATIENT
  Age: 80 Year
  Sex: Female
  Weight: 57 kg

DRUGS (40)
  1. NITROSTAT [Concomitant]
     Indication: ANGINA PECTORIS
     Route: 065
     Dates: end: 20030120
  2. NITRO-DUR [Concomitant]
     Indication: ANGINA PECTORIS
     Route: 065
     Dates: start: 20001221, end: 20011127
  3. ISOSORBIDE MONONITRATE [Concomitant]
     Indication: CHEST PAIN
     Route: 065
     Dates: start: 20020523
  4. ISOSORBIDE MONONITRATE [Concomitant]
     Indication: ANGINA PECTORIS
     Route: 065
     Dates: start: 20020523
  5. ECOTRIN [Concomitant]
     Indication: CEREBROVASCULAR ACCIDENT PROPHYLAXIS
     Route: 065
     Dates: start: 19980101, end: 20030101
  6. ECOTRIN [Concomitant]
     Indication: ANTICOAGULANT THERAPY
     Route: 065
     Dates: start: 19980101, end: 20030101
  7. CELEBREX [Concomitant]
     Indication: PAIN
     Route: 065
     Dates: start: 19990414, end: 20011201
  8. CELEBREX [Concomitant]
     Indication: ARTHRITIS
     Route: 065
     Dates: start: 19990414, end: 20011201
  9. K-DUR 10 [Concomitant]
     Indication: BLOOD POTASSIUM DECREASED
     Route: 065
     Dates: start: 20001221, end: 20011121
  10. KLOR-CON [Concomitant]
     Indication: BLOOD POTASSIUM DECREASED
     Route: 065
     Dates: start: 20011121, end: 20020509
  11. KLONOPIN [Concomitant]
     Indication: SLEEP DISORDER
     Route: 065
     Dates: start: 19981209, end: 20020101
  12. PRINIVIL [Concomitant]
     Indication: HYPERTENSION
     Route: 048
     Dates: start: 20000121, end: 20020528
  13. PRINIVIL [Concomitant]
     Indication: CARDIAC DISORDER
     Route: 048
     Dates: start: 20000121, end: 20020528
  14. NITROLINGUAL [Concomitant]
     Indication: CHEST PAIN
     Route: 065
     Dates: start: 20011127, end: 20030120
  15. NITROLINGUAL [Concomitant]
     Indication: ANGINA PECTORIS
     Route: 065
     Dates: start: 20011127, end: 20030120
  16. NITROSTAT [Concomitant]
     Indication: CHEST PAIN
     Route: 065
     Dates: end: 20030120
  17. ZESTRIL [Concomitant]
     Indication: CARDIAC DISORDER
     Route: 065
     Dates: start: 20020528, end: 20020901
  18. ZESTRIL [Concomitant]
     Route: 065
     Dates: start: 20020528, end: 20020901
  19. AVAPRO [Concomitant]
     Indication: HYPERTENSION
     Route: 065
     Dates: start: 20001221, end: 20020520
  20. AVAPRO [Concomitant]
     Route: 065
     Dates: start: 20001221, end: 20020520
  21. NORVASC [Concomitant]
     Indication: CARDIAC DISORDER
     Route: 065
     Dates: start: 20001221, end: 20010201
  22. NORVASC [Concomitant]
     Route: 065
     Dates: start: 20001221, end: 20010201
  23. NORVASC [Concomitant]
     Indication: HYPERTENSION
     Route: 065
     Dates: start: 20001221, end: 20010201
  24. NORVASC [Concomitant]
     Route: 065
     Dates: start: 20001221, end: 20010201
  25. NITRO-DUR [Concomitant]
     Indication: CHEST PAIN
     Route: 065
     Dates: start: 20001221, end: 20011127
  26. VIOXX [Suspect]
     Indication: ARTHRITIS
     Route: 048
     Dates: start: 20001201, end: 20030120
  27. VIOXX [Suspect]
     Indication: OSTEOARTHRITIS
     Route: 048
     Dates: start: 20001201, end: 20030120
  28. ZOCOR [Concomitant]
     Indication: BLOOD CHOLESTEROL INCREASED
     Route: 048
     Dates: start: 20000406, end: 20030120
  29. ZOCOR [Concomitant]
     Indication: HIGH DENSITY LIPOPROTEIN INCREASED
     Route: 048
     Dates: start: 20000406, end: 20030120
  30. PLAVIX [Concomitant]
     Indication: CARDIAC FAILURE CONGESTIVE
     Route: 065
     Dates: start: 20020519, end: 20030120
  31. COZAAR [Concomitant]
     Indication: HYPERTENSION
     Route: 048
     Dates: start: 20020520, end: 20030120
  32. FUROSEMIDE [Concomitant]
     Indication: HYPERTENSION
     Route: 065
     Dates: start: 19981219, end: 20030120
  33. REMINYL [Concomitant]
     Indication: DEMENTIA
     Route: 065
     Dates: start: 20010615, end: 20030120
  34. ZOLOFT [Concomitant]
     Indication: DEPRESSION
     Route: 065
     Dates: start: 19950101, end: 20020509
  35. ZOLOFT [Concomitant]
     Route: 065
     Dates: start: 20020806, end: 20030120
  36. COREG [Concomitant]
     Indication: HYPERTENSION
     Route: 065
     Dates: start: 20020917, end: 20030120
  37. COREG [Concomitant]
     Indication: CARDIAC DISORDER
     Route: 065
     Dates: start: 20020917, end: 20030120
  38. CLONIDINE [Concomitant]
     Indication: HYPERTENSION
     Route: 065
     Dates: start: 20020917, end: 20030120
  39. ZESTRIL [Concomitant]
     Indication: HYPERTENSION
     Route: 065
     Dates: start: 20020528, end: 20020901
  40. ZESTRIL [Concomitant]
     Route: 065
     Dates: start: 20020528, end: 20020901

REACTIONS (37)
  - ABDOMINAL INFECTION [None]
  - CARDIAC FAILURE [None]
  - CARDIAC FAILURE CONGESTIVE [None]
  - CARDIOVASCULAR DISORDER [None]
  - CENTRAL LINE INFECTION [None]
  - CEREBROVASCULAR ACCIDENT [None]
  - CHOLELITHIASIS [None]
  - CHRONIC RESPIRATORY FAILURE [None]
  - CONFUSIONAL STATE [None]
  - CORONARY ARTERY STENOSIS [None]
  - DEEP VEIN THROMBOSIS [None]
  - DEMENTIA [None]
  - DEPRESSION [None]
  - DIALYSIS [None]
  - DIARRHOEA [None]
  - DIVERTICULUM [None]
  - DIZZINESS [None]
  - FEMORAL BRUIT [None]
  - GASTRITIS [None]
  - GASTROINTESTINAL HAEMORRHAGE [None]
  - HAEMATOMA [None]
  - HAEMOGLOBIN DECREASED [None]
  - HAEMORRHOIDS [None]
  - HIATUS HERNIA [None]
  - HYPERLIPIDAEMIA [None]
  - HYPERTENSION [None]
  - INTRACRANIAL ANEURYSM [None]
  - IRON DEFICIENCY ANAEMIA [None]
  - ISCHAEMIC CARDIOMYOPATHY [None]
  - MYOCARDIAL INFARCTION [None]
  - POST-TRAUMATIC STRESS DISORDER [None]
  - PULMONARY OEDEMA [None]
  - RENAL FAILURE [None]
  - RENAL FAILURE CHRONIC [None]
  - SUBARACHNOID HAEMORRHAGE [None]
  - THYROID MASS [None]
  - WEIGHT DECREASED [None]
